FAERS Safety Report 8726876 (Version 2)
Quarter: 2012Q4

REPORT INFORMATION
  Report Type: Report from Study
  Country: CZ (occurrence: CZ)
  Receive Date: 20120816
  Receipt Date: 20120913
  Transmission Date: 20130627
  Serious: Yes (Hospitalization)
  Sender: FDA-Public Use
  Company Number: CZ-PFIZER INC-2012195902

PATIENT
  Age: 26 Year
  Sex: Female
  Weight: 50 kg

DRUGS (4)
  1. GENOTROPIN [Suspect]
     Indication: HYPOPITUITARISM
     Dosage: 0.7 mg, 1x/day (7 injections/week)
     Route: 058
     Dates: start: 20050316
  2. TRI-REGOL [Concomitant]
     Indication: LUTEINISING HORMONE DEFICIENCY
     Dosage: UNK
     Dates: start: 19920704
  3. TRI-REGOL [Concomitant]
     Indication: FOLLICLE-STIMULATING HORMONE DEFICIENCY
  4. LEVOTHYROXINE [Concomitant]
     Indication: BLOOD THYROID STIMULATING HORMONE DECREASED
     Dosage: UNK
     Dates: start: 19920704

REACTIONS (2)
  - Foreign body in eye [Recovered/Resolved]
  - Eye inflammation [Recovered/Resolved]
